FAERS Safety Report 25554903 (Version 4)
Quarter: 2025Q4

REPORT INFORMATION
  Report Type: Report from Study
  Country: US (occurrence: None)
  Receive Date: 20250715
  Receipt Date: 20251018
  Transmission Date: 20260118
  Serious: Yes (Other)
  Sender: UCB
  Company Number: US-UCBSA-2025042818

PATIENT
  Age: 10 Year
  Weight: 29.6 kg

DRUGS (6)
  1. FENFLURAMINE [Suspect]
     Active Substance: FENFLURAMINE
     Indication: Severe myoclonic epilepsy of infancy
     Dosage: 0.66 MILLIGRAM/KILOGRAM/DAY TOTALLY 19.8 MILLIGRAM PER DAY.
  2. FENFLURAMINE [Suspect]
     Active Substance: FENFLURAMINE
     Dosage: 4.5 MILLILITER, 2X/DAY (BID)
  3. FENFLURAMINE [Suspect]
     Active Substance: FENFLURAMINE
     Dosage: 0.6 MG/KG/DAY TO A TOTAL OF 19.8 MG/DAY
  4. BRIVIACT [Concomitant]
     Active Substance: BRIVARACETAM
     Indication: Seizure
     Dosage: UNK
  5. BRIVIACT [Concomitant]
     Active Substance: BRIVARACETAM
     Indication: Seizure
     Dosage: UNK
  6. BRIVIACT [Concomitant]
     Active Substance: BRIVARACETAM
     Indication: Seizure

REACTIONS (2)
  - Tricuspid valve incompetence [Unknown]
  - Right ventricular systolic pressure increased [Not Recovered/Not Resolved]
